FAERS Safety Report 4566535-6 (Version None)
Quarter: 2005Q1

REPORT INFORMATION
  Report Type: 
  Country: None (occurrence: None)
  Receive Date: 20050126
  Receipt Date: 20050126
  Transmission Date: 20050727
  Serious: Yes (Hospitalization)
  Sender: FDA-Public Use
  Company Number: None

PATIENT
  Sex: Male
  Weight: 84.8226 kg

DRUGS (4)
  1. CETUXIMAB 750 MG CYCLE 2 475MG [Suspect]
     Dates: start: 20041119
  2. CETUXIMAB 750 MG CYCLE 2 475MG [Suspect]
     Dates: start: 20041124
  3. IRINOTECAN 190MG 190MG [Suspect]
     Dates: start: 20041119
  4. IRINOTECAN 190MG 190MG [Suspect]
     Dates: start: 20041124

REACTIONS (4)
  - DERMATITIS ACNEIFORM [None]
  - DIARRHOEA [None]
  - NAUSEA [None]
  - VOMITING [None]
